FAERS Safety Report 18352493 (Version 2)
Quarter: 2023Q1

REPORT INFORMATION
  Report Type: Spontaneous
  Country: CA (occurrence: CA)
  Receive Date: 20201006
  Receipt Date: 20230213
  Transmission Date: 20230418
  Serious: Yes (Hospitalization, Other)
  Sender: FDA-Public Use
  Company Number: CA-NOVARTISPH-NVSC2020CA267459

PATIENT
  Sex: Female
  Weight: 62 kg

DRUGS (15)
  1. FULVESTRANT [Suspect]
     Active Substance: FULVESTRANT
     Indication: Nausea
     Dosage: UNK
     Route: 065
     Dates: start: 20200828
  2. FULVESTRANT [Suspect]
     Active Substance: FULVESTRANT
     Indication: Vomiting
     Dosage: UNK
     Route: 030
  3. METOCLOPRAMIDE [Suspect]
     Active Substance: METOCLOPRAMIDE
     Indication: Nausea
     Dosage: UNK
     Route: 065
     Dates: start: 20200828
  4. METOCLOPRAMIDE [Suspect]
     Active Substance: METOCLOPRAMIDE
     Indication: Vomiting
  5. DOCUSATE SODIUM [Suspect]
     Active Substance: DOCUSATE SODIUM
     Indication: Product used for unknown indication
     Dosage: 100 MG, BID
     Route: 048
  6. HYDROMORPHONE HYDROCHLORIDE [Suspect]
     Active Substance: HYDROMORPHONE HYDROCHLORIDE
     Indication: Product used for unknown indication
     Dosage: 1 MG, PRN (EVERY 4-6 HRS)
     Route: 048
  7. ANASTROZOLE [Suspect]
     Active Substance: ANASTROZOLE
     Indication: Product used for unknown indication
     Dosage: 1 MG, QD (TABLET)
     Route: 048
  8. APIXABAN [Suspect]
     Active Substance: APIXABAN
     Indication: Product used for unknown indication
     Dosage: 5 MG, BID (TWICE A DAY)
     Route: 048
  9. CHOLECALCIFEROL [Suspect]
     Active Substance: CHOLECALCIFEROL
     Indication: Product used for unknown indication
     Dosage: 1000 IU, QD
     Route: 048
  10. CALCIUM CARBONATE [Suspect]
     Active Substance: CALCIUM CARBONATE
     Indication: Product used for unknown indication
     Dosage: 1250 MG, BID (AT LUNCH AND DINNER)
     Route: 048
  11. IBRANCE [Suspect]
     Active Substance: PALBOCICLIB
     Indication: Product used for unknown indication
     Dosage: 100 MG, CYCLIC (ONCE DAILY FOR 21 DAYS EVERY 28 DAYS)
     Route: 048
  12. IBRANCE [Suspect]
     Active Substance: PALBOCICLIB
     Dosage: 125 MG, CYCLIC (ONCE DAILY FOR 21 DAYS EVERY 28 DAYS)
     Route: 048
     Dates: start: 20200828
  13. VITAMIN D3 [Suspect]
     Active Substance: CHOLECALCIFEROL
     Indication: Product used for unknown indication
     Dosage: 1000 IU, QD
     Route: 048
  14. VITAMIN D3 [Suspect]
     Active Substance: CHOLECALCIFEROL
     Dosage: 1000 IU, QD
     Route: 048
  15. VITAMIN D3 [Suspect]
     Active Substance: CHOLECALCIFEROL
     Dosage: 1000 IU, QD
     Route: 048

REACTIONS (4)
  - Cerebral thrombosis [Unknown]
  - Gait inability [Unknown]
  - Weight decreased [Unknown]
  - Body height decreased [Unknown]
